FAERS Safety Report 23015615 (Version 1)
Quarter: 2023Q4

REPORT INFORMATION
  Report Type: Spontaneous
  Country: DE (occurrence: DE)
  Receive Date: 20231002
  Receipt Date: 20231002
  Transmission Date: 20240110
  Serious: Yes (Hospitalization, Other)
  Sender: FDA-Public Use
  Company Number: None

PATIENT

DRUGS (5)
  1. PROGESTERONE [Suspect]
     Active Substance: PROGESTERONE
     Indication: Assisted reproductive technology
     Dosage: 600 MG, DAILY
     Route: 067
  2. GONADOTROPHIN, CHORIONIC [Suspect]
     Active Substance: GONADOTROPHIN, CHORIONIC
     Indication: Assisted reproductive technology
     Dosage: 150 DAY 1-10
     Route: 065
  3. FOLLITROPIN [Suspect]
     Active Substance: FOLLITROPIN
     Indication: Assisted reproductive technology
     Dosage: 150 DAY 11
     Route: 065
  4. FOLLITROPIN [Suspect]
     Active Substance: FOLLITROPIN
     Dosage: 100 DAY 5-10
     Route: 065
  5. FOLLITROPIN [Suspect]
     Active Substance: FOLLITROPIN
     Dosage: 150 DAY 1-4
     Route: 065

REACTIONS (2)
  - Ovarian hyperstimulation syndrome [Unknown]
  - Pulmonary embolism [Unknown]

NARRATIVE: CASE EVENT DATE: 20230824
